FAERS Safety Report 15769895 (Version 1)
Quarter: 2018Q4

REPORT INFORMATION
  Report Type: Spontaneous
  Country: US (occurrence: US)
  Receive Date: 20181227
  Receipt Date: 20181227
  Transmission Date: 20190205
  Serious: Yes (Other)
  Sender: FDA-Public Use
  Company Number: None

PATIENT
  Age: 1 Day
  Sex: Female
  Weight: 83.25 kg

DRUGS (1)
  1. IRBESARTAN TABS 300MG, GENERIC FOR AVAPRO TABS [Suspect]
     Active Substance: IRBESARTAN
     Indication: HYPERTENSION
     Dosage: ?          QUANTITY:1 TABLET(S);?
     Route: 048
     Dates: start: 20180720, end: 20181120

REACTIONS (3)
  - Condition aggravated [None]
  - Psoriasis [None]
  - Product quality issue [None]

NARRATIVE: CASE EVENT DATE: 20180725
